FAERS Safety Report 6523557-3 (Version None)
Quarter: 2009Q4

REPORT INFORMATION
  Report Type: 
  Country: None (occurrence: None)
  Receive Date: 20091231
  Receipt Date: 20091221
  Transmission Date: 20100525
  Serious: Yes (Other)
  Sender: FDA-Public Use
  Company Number: PHHY2009IT57559

PATIENT
  Sex: Female

DRUGS (6)
  1. ZOMETA [Suspect]
     Indication: RHEUMATIC FEVER
     Dosage: 4 MG, QMO
     Route: 042
  2. DELTACORTENE [Concomitant]
  3. SANDIMMUNE [Concomitant]
     Dosage: 100 MG, UNK
     Route: 048
  4. CIPRALEX [Concomitant]
  5. FLEXIBAN [Concomitant]
  6. SPIRIVA [Concomitant]

REACTIONS (1)
  - OSTEONECROSIS [None]
